FAERS Safety Report 5095218-1 (Version None)
Quarter: 2006Q3

REPORT INFORMATION
  Report Type: 
  Country: None (occurrence: None)
  Receive Date: 20060901
  Receipt Date: 20060831
  Transmission Date: 20061208
  Serious: Yes (Other)
  Sender: FDA-Public Use
  Company Number: 2006016486

PATIENT
  Age: 36 Year
  Sex: Male

DRUGS (3)
  1. LAMICTAL [Suspect]
     Route: 048
  2. CARBAMAZEPINE [Suspect]
     Dosage: 600MG PER DAY
     Route: 048
     Dates: start: 19900101
  3. ERGENYL [Suspect]
     Dosage: 2TAB THREE TIMES PER DAY
     Route: 048
     Dates: start: 19900101

REACTIONS (5)
  - DISSEMINATED INTRAVASCULAR COAGULATION [None]
  - PLATELET COUNT DECREASED [None]
  - PYREXIA [None]
  - RASH [None]
  - RHABDOMYOLYSIS [None]
